FAERS Safety Report 8010058-9 (Version None)
Quarter: 2011Q4

REPORT INFORMATION
  Report Type: 
  Country: None (occurrence: None)
  Receive Date: 20111228
  Receipt Date: 20111221
  Transmission Date: 20120403
  Serious: Yes (Hospitalization, Other)
  Sender: FDA-Public Use
  Company Number: US-BRISTOL-MYERS SQUIBB COMPANY-16280646

PATIENT
  Age: 66 Year
  Sex: Female

DRUGS (3)
  1. SPRYCEL [Suspect]
     Indication: CHRONIC MYELOID LEUKAEMIA
     Dosage: 1DF:2TABS OF 50MG DOSE REDUCED TO 50MG AND LATER TO 20MG AND WAS CONTINUING.
     Route: 048
     Dates: start: 20070401, end: 20110601
  2. VITAMIN TAB [Suspect]
  3. LORAZEPAM [Concomitant]

REACTIONS (4)
  - GASTRIC DISORDER [None]
  - PLEURAL EFFUSION [None]
  - PLEURAL INFECTION [None]
  - BRONCHITIS [None]
